FAERS Safety Report 24307594 (Version 1)
Quarter: 2024Q3

REPORT INFORMATION
  Report Type: Spontaneous
  Country: FR (occurrence: FR)
  Receive Date: 20240911
  Receipt Date: 20240911
  Transmission Date: 20241016
  Serious: Yes (Hospitalization, Other)
  Sender: ANI
  Company Number: FR-ANIPHARMA-2024-FR-000159

PATIENT
  Age: 83 Year
  Sex: Female

DRUGS (13)
  1. CANDESARTAN [Suspect]
     Active Substance: CANDESARTAN
     Indication: Product used for unknown indication
     Dates: start: 202406
  2. TRAMADOL [Concomitant]
     Active Substance: TRAMADOL\TRAMADOL HYDROCHLORIDE
     Dates: start: 202406
  3. ACETAMINOPHEN [Concomitant]
     Active Substance: ACETAMINOPHEN
     Dates: start: 202406
  4. LOPERAMIDE [Concomitant]
     Active Substance: LOPERAMIDE
     Dates: start: 202406
  5. SPASFON [Concomitant]
     Dates: start: 202406
  6. HYDROXYUREA [Suspect]
     Active Substance: HYDROXYUREA
     Dosage: 2000 MG DAILY
     Dates: start: 202406
  7. ASPIRIN [Concomitant]
     Active Substance: ASPIRIN
     Dates: start: 202406
  8. RISEDRONATE SODIUM [Concomitant]
     Active Substance: RISEDRONATE SODIUM
     Dates: start: 202406
  9. LOPRAZOLAM [Concomitant]
     Active Substance: LOPRAZOLAM
     Dates: start: 202406
  10. CALCIUM CARBONATE [Concomitant]
     Active Substance: CALCIUM CARBONATE
     Dates: start: 202406
  11. ESOMEPRAZOLE [Concomitant]
     Active Substance: ESOMEPRAZOLE
     Dates: start: 202406
  12. DOLIPRANE [Concomitant]
     Active Substance: ACETAMINOPHEN
     Dates: start: 202406
  13. ATORVASTATIN [Concomitant]
     Active Substance: ATORVASTATIN
     Dates: start: 202406

REACTIONS (3)
  - Infarction [Unknown]
  - Anaemia [Not Recovered/Not Resolved]
  - Dysphagia [Unknown]

NARRATIVE: CASE EVENT DATE: 20240701
